FAERS Safety Report 4876919-4 (Version None)
Quarter: 2006Q1

REPORT INFORMATION
  Report Type: 
  Country: None (occurrence: None)
  Receive Date: 20060110
  Receipt Date: 20060104
  Transmission Date: 20060701
  Serious: Yes (Other)
  Sender: FDA-Public Use
  Company Number: IL-ROCHE-431029

PATIENT
  Age: 37 Year
  Sex: Male

DRUGS (2)
  1. CLONAZEPAM [Suspect]
     Indication: PANIC DISORDER
     Dosage: DOSAGE GRADUALLY INCREASED TO 6 MG.
     Route: 065
  2. CLONAZEPAM [Suspect]
     Route: 065

REACTIONS (3)
  - DISINHIBITION [None]
  - HIGH RISK SEXUAL BEHAVIOUR [None]
  - HYPOMANIA [None]
